FAERS Safety Report 10240823 (Version 2)
Quarter: 2014Q2

REPORT INFORMATION
  Report Type: Report from Study
  Country: US (occurrence: US)
  Receive Date: 20140617
  Receipt Date: 20140625
  Transmission Date: 20141212
  Serious: Yes (Other)
  Sender: FDA-Public Use
  Company Number: US-ROCHE-1418512

PATIENT
  Sex: 0

DRUGS (4)
  1. TRASTUZUMAB [Suspect]
     Indication: HER-2 POSITIVE BREAST CANCER
     Dosage: LOAD
     Route: 065
  2. TRASTUZUMAB [Suspect]
     Route: 065
  3. TRASTUZUMAB [Suspect]
     Dosage: 39 WEEK (2 MG/KG WEEKLY OR 6 MG/KG EVERY 3 WEEK).
     Route: 065
  4. PACLITAXEL [Suspect]
     Indication: HER-2 POSITIVE BREAST CANCER
     Route: 065

REACTIONS (7)
  - Left ventricular dysfunction [Unknown]
  - Neuropathy peripheral [Unknown]
  - Neutropenia [Unknown]
  - Transaminases increased [Unknown]
  - Leukopenia [Unknown]
  - Fatigue [Unknown]
  - Hypersensitivity [Unknown]
